FAERS Safety Report 10081372 (Version 2)
Quarter: 2014Q2

REPORT INFORMATION
  Report Type: Spontaneous
  Country: US (occurrence: None)
  Receive Date: 20140414
  Receipt Date: 20140523
  Transmission Date: 20141212
  Serious: Yes (Death, Hospitalization)
  Sender: FDA-Public Use
  Company Number: UTC-046984

PATIENT
  Age: 68 Year
  Sex: Male

DRUGS (2)
  1. REMODULIN [Suspect]
     Indication: PULMONARY ARTERIAL HYPERTENSION
     Dosage: 0.01UG/KG/MIN, SUBCUTANEOUS
     Route: 058
     Dates: start: 20131203
  2. COUMADIN (WARFARIN SODIUM) [Concomitant]

REACTIONS (2)
  - Acute respiratory distress syndrome [None]
  - Sepsis [None]
